FAERS Safety Report 20947436 (Version 1)
Quarter: 2022Q2

REPORT INFORMATION
  Report Type: Report from Study
  Country: US (occurrence: US)
  Receive Date: 20220610
  Receipt Date: 20220610
  Transmission Date: 20220721
  Serious: Yes (Hospitalization, Other)
  Sender: FDA-Public Use
  Company Number: US-HLS-202200471

PATIENT
  Age: 61 Year

DRUGS (1)
  1. CLOZAPINE [Suspect]
     Active Substance: CLOZAPINE
     Indication: Product used for unknown indication
     Dosage: 100MG IN THE AM 700MG AT BEDTIME
     Route: 048

REACTIONS (3)
  - Neutrophil count increased [Unknown]
  - COVID-19 [Unknown]
  - Sepsis [Unknown]

NARRATIVE: CASE EVENT DATE: 20220526
